FAERS Safety Report 7786410-3 (Version None)
Quarter: 2011Q3

REPORT INFORMATION
  Report Type: 
  Country: None (occurrence: None)
  Receive Date: 20110927
  Receipt Date: 20110916
  Transmission Date: 20111222
  Serious: Yes (Other)
  Sender: FDA-Public Use
  Company Number: AU-GDP-11411854

PATIENT

DRUGS (1)
  1. METVIX (METHYL AMINOLEVULINATE HYDROCHLORIDE)16% [Suspect]
     Indication: PRODUCT USED FOR UNKNOWN INDICATION
     Dosage: TOPICAL
     Route: 061

REACTIONS (1)
  - NEOPLASM MALIGNANT [None]
